FAERS Safety Report 8514120-3 (Version None)
Quarter: 2012Q3

REPORT INFORMATION
  Report Type: 
  Country: None (occurrence: None)
  Receive Date: 20120717
  Receipt Date: 20120709
  Transmission Date: 20120928
  Serious: No
  Sender: FDA-Public Use
  Company Number: US-009507513-1207USA002078

PATIENT

DRUGS (3)
  1. LINEZOLID [Concomitant]
  2. INVANZ [Suspect]
     Indication: DIABETIC FOOT INFECTION
     Dosage: UNK
     Route: 042
  3. INVANZ [Suspect]
     Dosage: 250 MG, QD
     Route: 042

REACTIONS (2)
  - NEUROLOGICAL SYMPTOM [None]
  - ABNORMAL BEHAVIOUR [None]
